FAERS Safety Report 9207556 (Version 3)
Quarter: 2013Q2

REPORT INFORMATION
  Report Type: Report from Study
  Country: JP (occurrence: JP)
  Receive Date: 20130403
  Receipt Date: 20130422
  Transmission Date: 20140414
  Serious: Yes (Other)
  Sender: FDA-Public Use
  Company Number: JP-ROCHE-1209078

PATIENT
  Age: 5 Year
  Sex: Female

DRUGS (3)
  1. DORNASE ALFA [Suspect]
     Indication: CYSTIC FIBROSIS
     Route: 055
     Dates: start: 20120620, end: 20120821
  2. PANCRELIPASE [Concomitant]
     Indication: CYSTIC FIBROSIS
     Route: 048
     Dates: start: 20120620, end: 20120821
  3. PANCRELIPASE [Concomitant]
     Indication: CYSTIC FIBROSIS
     Route: 048
     Dates: start: 20120620, end: 20120821

REACTIONS (2)
  - Haemoptysis [Recovered/Resolved]
  - Bronchitis [Recovered/Resolved]
